FAERS Safety Report 19308317 (Version 1)
Quarter: 2021Q2

REPORT INFORMATION
  Report Type: Spontaneous
  Country: US (occurrence: US)
  Receive Date: 20210525
  Receipt Date: 20210525
  Transmission Date: 20210717
  Serious: No
  Sender: FDA-Public Use
  Company Number: US-PURDUE PHARMA-USA-2021-0226274

PATIENT
  Sex: Male

DRUGS (2)
  1. TAPENTADOL [Suspect]
     Active Substance: TAPENTADOL
     Indication: COMPLEX REGIONAL PAIN SYNDROME
     Route: 065
  2. OXYCONTIN [Suspect]
     Active Substance: OXYCODONE HYDROCHLORIDE
     Indication: COMPLEX REGIONAL PAIN SYNDROME
     Route: 048

REACTIONS (4)
  - Pain [Recovered/Resolved]
  - Abdominal discomfort [Unknown]
  - Performance status decreased [Recovered/Resolved]
  - Inadequate analgesia [Recovered/Resolved]
